FAERS Safety Report 6609294-5 (Version None)
Quarter: 2010Q1

REPORT INFORMATION
  Report Type: 
  Country: None (occurrence: None)
  Receive Date: 20100224
  Receipt Date: 20100215
  Transmission Date: 20100710
  Serious: Yes (Death)
  Sender: FDA-Public Use
  Company Number: B0635206A

PATIENT
  Age: 45 Year
  Sex: Female

DRUGS (4)
  1. ATOVAQUONE [Suspect]
     Indication: BABESIOSIS
     Dosage: 750 MG / TWICE PER DAY / UNKNOWN
     Dates: start: 20080522
  2. AZITHROMYCIN [Suspect]
     Route: 048
  3. CYCLOSPORINE [Concomitant]
  4. PREDNISONE [Concomitant]

REACTIONS (3)
  - DRUG RESISTANCE [None]
  - MULTI-ORGAN FAILURE [None]
  - PYREXIA [None]
